FAERS Safety Report 5588197-1 (Version None)
Quarter: 2008Q1

REPORT INFORMATION
  Report Type: 
  Country: None (occurrence: None)
  Receive Date: 20080109
  Receipt Date: 20080109
  Transmission Date: 20080703
  Serious: Yes (Other)
  Sender: FDA-Public Use
  Company Number: None

PATIENT
  Age: 25 Year
  Sex: Female
  Weight: 52.1637 kg

DRUGS (1)
  1. ULTRAM [Suspect]
     Indication: OFF LABEL USE
     Dosage: 50MG  BID  PO
     Route: 048
     Dates: start: 20070920, end: 20071231

REACTIONS (1)
  - DRUG ABUSE [None]
